FAERS Safety Report 14135871 (Version 2)
Quarter: 2017Q4

REPORT INFORMATION
  Report Type: Spontaneous
  Country: US (occurrence: US)
  Receive Date: 20171027
  Receipt Date: 20171216
  Transmission Date: 20180321
  Serious: No
  Sender: FDA-Public Use
  Company Number: US-009507513-1710USA000550

PATIENT
  Sex: Female

DRUGS (4)
  1. BELSOMRA [Suspect]
     Active Substance: SUVOREXANT
     Indication: INSOMNIA
     Dosage: 5MG / ONCE PER DAY (AN HOUR BEFORE SHE SLEEPS)
     Route: 048
     Dates: start: 201709, end: 20171115
  2. VITAMIN B (UNSPECIFIED) [Concomitant]
     Active Substance: VITAMIN B
     Dosage: UNK
  3. PAXIL [Suspect]
     Active Substance: PAROXETINE HYDROCHLORIDE
     Dosage: UNK
  4. TYLENOL [Concomitant]
     Active Substance: ACETAMINOPHEN
     Dosage: UNK

REACTIONS (6)
  - Somnambulism [Unknown]
  - Insomnia [Unknown]
  - Drug ineffective [Unknown]
  - Middle insomnia [Unknown]
  - Depressed mood [Unknown]
  - Product quality issue [Unknown]

NARRATIVE: CASE EVENT DATE: 2017
